FAERS Safety Report 6555256-6 (Version None)
Quarter: 2010Q1

REPORT INFORMATION
  Report Type: 
  Country: None (occurrence: None)
  Receive Date: 20100128
  Receipt Date: 20090122
  Transmission Date: 20100710
  Serious: No
  Sender: FDA-Public Use
  Company Number: A0765530A

PATIENT
  Sex: Female

DRUGS (1)
  1. WELLBUTRIN [Suspect]
     Indication: MIGRAINE
     Dosage: 300MG UNKNOWN
     Route: 048
     Dates: start: 20080101

REACTIONS (3)
  - DYSPNOEA [None]
  - OFF LABEL USE [None]
  - RESPIRATION ABNORMAL [None]
